FAERS Safety Report 17224679 (Version 1)
Quarter: 2020Q1

REPORT INFORMATION
  Report Type: Spontaneous
  Country: BE (occurrence: BE)
  Receive Date: 20200102
  Receipt Date: 20200102
  Transmission Date: 20200409
  Serious: Yes (Other)
  Sender: FDA-Public Use
  Company Number: BE-MYLANLABS-2019M1131418

PATIENT
  Sex: Female
  Weight: 43 kg

DRUGS (1)
  1. PACLITAXEL. [Suspect]
     Active Substance: PACLITAXEL
     Indication: MUCOEPIDERMOID CARCINOMA OF SALIVARY GLAND
     Dosage: UNK
     Route: 065
     Dates: start: 201805, end: 201806

REACTIONS (1)
  - Malignant neoplasm progression [Unknown]
